FAERS Safety Report 8915853 (Version 1)
Quarter: 2012Q4

REPORT INFORMATION
  Report Type: 
  Country: US (occurrence: US)
  Receive Date: 20121119
  Receipt Date: 20121119
  Transmission Date: 20130627
  Serious: No
  Sender: FDA-Public Use
  Company Number: US-PFIZER INC-2012287367

PATIENT
  Age: 82 Year
  Sex: Female
  Weight: 61.22 kg

DRUGS (4)
  1. LYRICA [Suspect]
     Indication: TRIGEMINAL NEURALGIA
     Dosage: 50 mg, 3x/day
     Dates: start: 2012
  2. BENICAR HCT [Concomitant]
     Indication: BLOOD PRESSURE HIGH
     Dosage: 20 mg, 1x/day
  3. PRAVASTATIN [Concomitant]
     Dosage: 20 mg, 1x/day
  4. LEVOTHYROXINE [Concomitant]
     Dosage: 0.5 mg, 1x/day

REACTIONS (2)
  - Feeling abnormal [Unknown]
  - Dizziness [Unknown]
